FAERS Safety Report 17975090 (Version 1)
Quarter: 2020Q3

REPORT INFORMATION
  Report Type: Spontaneous
  Country: PH (occurrence: PH)
  Receive Date: 20200702
  Receipt Date: 20200702
  Transmission Date: 20201103
  Serious: Yes (Death, Other)
  Sender: FDA-Public Use
  Company Number: PH-ROCHE-2633641

PATIENT
  Age: 61 Year
  Sex: Male

DRUGS (1)
  1. ACTILYSE [Suspect]
     Active Substance: ALTEPLASE
     Indication: EMBOLISM ARTERIAL
     Route: 065

REACTIONS (4)
  - Depressed level of consciousness [Unknown]
  - Cerebral infarction [Unknown]
  - Obstruction [Unknown]
  - Death [Fatal]
